FAERS Safety Report 25448919 (Version 1)
Quarter: 2025Q2

REPORT INFORMATION
  Report Type: Spontaneous
  Country: US (occurrence: US)
  Receive Date: 20250618
  Receipt Date: 20250618
  Transmission Date: 20250716
  Serious: Yes (Hospitalization, Other)
  Sender: VIIV
  Company Number: US-GSKCCFUS-Case-02313714_AE-124071

PATIENT
  Sex: Male

DRUGS (1)
  1. RUKOBIA [Suspect]
     Active Substance: FOSTEMSAVIR TROMETHAMINE
     Indication: Product used for unknown indication
     Dosage: 600 MG, BID

REACTIONS (2)
  - Haemorrhage intracranial [Not Recovered/Not Resolved]
  - Fall [Not Recovered/Not Resolved]
